FAERS Safety Report 6188975-4 (Version None)
Quarter: 2009Q2

REPORT INFORMATION
  Report Type: 
  Country: None (occurrence: None)
  Receive Date: 20090513
  Receipt Date: 20090501
  Transmission Date: 20091009
  Serious: Yes (Death)
  Sender: FDA-Public Use
  Company Number: US-PFIZER INC-2009186217

PATIENT
  Sex: Female
  Weight: 61 kg

DRUGS (19)
  1. SUNITINIB MALATE [Suspect]
     Indication: BREAST CANCER
     Dosage: 37.5 MG, 1X/DAY
     Route: 048
     Dates: start: 20090228, end: 20090409
  2. GABAPENTIN [Concomitant]
     Indication: BREAST PAIN
     Dosage: 600 MG, 1X/DAY
     Dates: end: 20090421
  3. GABAPENTIN [Concomitant]
     Indication: NEUROPATHY PERIPHERAL
  4. SYNTHROID [Concomitant]
     Indication: HYPOTHYROIDISM
     Dosage: 50 UG, 1X/DAY
     Route: 048
     Dates: end: 20090421
  5. CLONIDINE [Concomitant]
     Indication: HYPERTENSION
     Dosage: 0.2 MG, 1X/DAY
  6. AVAPRO [Concomitant]
     Indication: HYPERTENSION
     Dosage: 300 MG, 1X/DAY
  7. METOPROLOL SUCCINATE [Concomitant]
     Indication: HYPERTENSION
     Dosage: 100 MG, 1X/DAY
  8. ATIVAN [Concomitant]
     Indication: ANXIETY DISORDER
     Dosage: 1 MG, EVERY 8 HOURS, PRN
     Route: 048
  9. LEVAQUIN [Concomitant]
     Indication: BREAST DISCHARGE
     Dosage: 500 MG, 2X/DAY
  10. DARVOCET-N 100 [Concomitant]
     Indication: BREAST PAIN
     Dosage: 100 MG, Q4-6H, PRN
  11. COMPAZINE [Concomitant]
     Indication: NAUSEA
     Dosage: 10 MG, Q4-6H, PRN
  12. ALLOPURINOL [Concomitant]
     Indication: GOUT
     Dosage: 300 MG, 1X/DAY
  13. ZETIA [Concomitant]
     Indication: HYPERCHOLESTEROLAEMIA
     Dosage: 10 MG, 1X/DAY
  14. OS-CAL [Concomitant]
     Indication: MINERAL SUPPLEMENTATION
     Dosage: 500 MG, 1X/DAY
  15. ZOVIRAX [Concomitant]
     Indication: ANTIVIRAL TREATMENT
     Dosage: 400 MG, 1X/DAY
     Route: 048
     Dates: end: 20090421
  16. PANTOPRAZOLE SODIUM [Concomitant]
     Indication: HYPERTENSION
     Dosage: 40 MG, 1X/DAY
     Route: 048
  17. CATAPRES [Concomitant]
     Indication: HYPERTENSION
     Dosage: 0.2 MG, 1X/DAY
     Route: 048
  18. NOVOLIN R [Concomitant]
     Indication: BLOOD GLUCOSE INCREASED
     Dosage: 100 IU, AS NEEDED
  19. RESTORIL [Concomitant]
     Indication: INSOMNIA
     Dosage: 15 MG, AS NEEDED
     Route: 048

REACTIONS (2)
  - BREAST CANCER [None]
  - DISEASE PROGRESSION [None]
